FAERS Safety Report 13953110 (Version 4)
Quarter: 2018Q1

REPORT INFORMATION
  Report Type: Report from Study
  Country: BR (occurrence: BR)
  Receive Date: 20170911
  Receipt Date: 20180329
  Transmission Date: 20180508
  Serious: Yes (Other)
  Sender: FDA-Public Use
  Company Number: BR-ROCHE-1910010

PATIENT
  Age: 38 Year
  Sex: Female
  Weight: 74 kg

DRUGS (20)
  1. XOLAIR [Suspect]
     Active Substance: OMALIZUMAB
     Indication: CHRONIC OBSTRUCTIVE PULMONARY DISEASE
     Route: 058
  2. AMYTRIL [Concomitant]
     Active Substance: AMITRIPTYLINE HYDROCHLORIDE
     Indication: HEADACHE
     Dosage: 25 MG, QD
     Route: 048
  3. TOPIRAMATE. [Concomitant]
     Active Substance: TOPIRAMATE
     Dosage: 2 DF (100 MG), QD
     Route: 048
     Dates: start: 2017
  4. VELIJA [Concomitant]
     Active Substance: DULOXETINE HYDROCHLORIDE
     Indication: PAIN
     Dosage: 1 DF, QD
     Route: 048
     Dates: start: 2017
  5. TRAMAL [Concomitant]
     Active Substance: TRAMADOL
     Indication: HEADACHE
     Dosage: 100 MG, BID
     Route: 048
  6. TRAMAL [Concomitant]
     Active Substance: TRAMADOL
     Indication: NERVOUS SYSTEM DISORDER
     Dosage: UNK, TID (6 MONTHS AGO)
     Route: 048
  7. TRAMAL [Concomitant]
     Active Substance: TRAMADOL
     Dosage: 3 DF, QD
     Route: 065
     Dates: start: 2017, end: 201710
  8. ALPRAZOLAM. [Concomitant]
     Active Substance: ALPRAZOLAM
     Indication: NERVOUS SYSTEM DISORDER
     Dosage: UNK, QD
     Route: 048
  9. PREBICTAL [Concomitant]
     Active Substance: PREGABALIN
     Indication: PAIN
     Dosage: 2 DF, QD
     Route: 048
  10. DIPYRONE [Concomitant]
     Active Substance: DIPYRONE
  11. XOLAIR [Suspect]
     Active Substance: OMALIZUMAB
     Indication: ASTHMA
     Dosage: 1 DF, QMO
     Route: 058
     Dates: start: 20161109
  12. AMYTRIL [Concomitant]
     Active Substance: AMITRIPTYLINE HYDROCHLORIDE
     Indication: NERVOUS SYSTEM DISORDER
     Dosage: UNK, QD (10 MONTHS AGO)
     Route: 048
  13. ALENIA (BRAZIL) [Concomitant]
     Active Substance: BUDESONIDE\FORMOTEROL FUMARATE
     Indication: ASTHMA
     Dosage: Q12H
     Route: 048
     Dates: start: 201704
  14. MORPHINE [Concomitant]
     Active Substance: MORPHINE
     Indication: NERVOUS SYSTEM DISORDER
     Dosage: 2 DF, QD
     Route: 048
     Dates: start: 201710
  15. TOPIRAMATE. [Concomitant]
     Active Substance: TOPIRAMATE
     Indication: HEADACHE
     Dosage: 50 MG, BID
     Route: 048
  16. OMEPRAZOLE MAGNESIUM. [Concomitant]
     Active Substance: OMEPRAZOLE MAGNESIUM
     Indication: PROPHYLAXIS
     Dosage: 1 DF, QD
     Route: 048
  17. MULTI VITAMIN/MINERAL [Concomitant]
     Active Substance: MINERALS\VITAMINS
     Indication: PRODUCT USED FOR UNKNOWN INDICATION
     Dosage: UNK UNK, QD
     Route: 048
  18. ALPRAZOLAM. [Concomitant]
     Active Substance: ALPRAZOLAM
     Indication: HEADACHE
     Dosage: 1 MG, QD
     Route: 048
     Dates: start: 2017
  19. TOPIRAMATE. [Concomitant]
     Active Substance: TOPIRAMATE
     Indication: NERVOUS SYSTEM DISORDER
     Dosage: UNK, Q12H (6 MONTHS AGO)
     Route: 048
  20. LOSARTAN. [Concomitant]
     Active Substance: LOSARTAN
     Indication: HYPERTENSION
     Dosage: 50 MG, Q12H
     Route: 048
     Dates: start: 2012

REACTIONS (20)
  - Headache [Not Recovered/Not Resolved]
  - Malaise [Unknown]
  - Pain in extremity [Unknown]
  - Cerebrovascular accident [Recovered/Resolved]
  - Autoimmune thyroid disorder [Not Recovered/Not Resolved]
  - Nosocomial infection [Recovering/Resolving]
  - Lung disorder [Not Recovered/Not Resolved]
  - Vitamin D decreased [Recovering/Resolving]
  - Brain oedema [Unknown]
  - Cerebral small vessel ischaemic disease [Unknown]
  - Iron deficiency anaemia [Recovering/Resolving]
  - Hypertensive crisis [Unknown]
  - Thyroid cancer metastatic [Recovered/Resolved]
  - Abdominal pain upper [Unknown]
  - Chest pain [Recovered/Resolved]
  - Fatigue [Unknown]
  - Pain [Not Recovered/Not Resolved]
  - Product use in unapproved indication [Unknown]
  - Visual impairment [Not Recovered/Not Resolved]
  - Application site pain [Unknown]

NARRATIVE: CASE EVENT DATE: 20161109
